FAERS Safety Report 22304541 (Version 1)
Quarter: 2023Q2

REPORT INFORMATION
  Report Type: Spontaneous
  Country: US (occurrence: None)
  Receive Date: 20230509
  Receipt Date: 20230509
  Transmission Date: 20230721
  Serious: Yes (unspecified)
  Sender: FDA-Public Use
  Company Number: None

PATIENT
  Age: 42 Year
  Sex: Female

DRUGS (1)
  1. ENBREL [Suspect]
     Active Substance: ETANERCEPT
     Indication: Ankylosing spondylitis
     Dosage: FREQUENCY : WEEKLY;?
     Route: 058
     Dates: start: 20230331, end: 20230509

REACTIONS (6)
  - Injection site reaction [None]
  - Injection site induration [None]
  - Injection site erythema [None]
  - Eye pain [None]
  - Vision blurred [None]
  - Eye infection [None]

NARRATIVE: CASE EVENT DATE: 20230509
